FAERS Safety Report 10254278 (Version 1)
Quarter: 2014Q2

REPORT INFORMATION
  Report Type: Spontaneous
  Country: US (occurrence: US)
  Receive Date: 20140624
  Receipt Date: 20140624
  Transmission Date: 20141212
  Serious: Yes (Other)
  Sender: FDA-Public Use
  Company Number: US-AMGEN INC.-USASP2014046662

PATIENT
  Age: 55 Year
  Sex: Female

DRUGS (8)
  1. ENBREL [Suspect]
     Indication: PSORIASIS
     Dosage: 25 MG, (EVERY 10 DAYS)
     Route: 058
  2. ZYRTEC [Concomitant]
     Dosage: 5 MG, UNK
  3. SYNTHROID [Concomitant]
     Dosage: 75 MUG, UNK
  4. BACLOFEN [Concomitant]
     Dosage: 10 MG, UNK
  5. ARMOUR THYROID [Concomitant]
     Dosage: 15 MG, UNK
  6. VITAMIN D3 [Concomitant]
     Dosage: 1000 UNIT, UNK
  7. VITAMIN B [Concomitant]
     Dosage: UNK
  8. POTASSIUM MAGNESIUM ASPARTATE [Concomitant]
     Dosage: UNK

REACTIONS (6)
  - Varicose vein [Unknown]
  - Neck plastic surgery [Unknown]
  - Costochondritis [Unknown]
  - Sinusitis [Unknown]
  - Bronchitis [Unknown]
  - Psoriasis [Unknown]
